FAERS Safety Report 24364045 (Version 1)
Quarter: 2024Q3

REPORT INFORMATION
  Report Type: Spontaneous
  Country: CN (occurrence: CN)
  Receive Date: 20240925
  Receipt Date: 20240925
  Transmission Date: 20241016
  Serious: Yes (Other)
  Sender: PFIZER
  Company Number: CN-PFIZER INC-PV202400123671

PATIENT
  Age: 4 Year
  Sex: Female
  Weight: 15.5 kg

DRUGS (3)
  1. EPIRUBICIN [Suspect]
     Active Substance: EPIRUBICIN
     Indication: Acute lymphocytic leukaemia
     Dosage: 19.1 MG, 1X/DAY
     Route: 041
     Dates: start: 20240730, end: 20240730
  2. DEXTROSE [Suspect]
     Active Substance: DEXTROSE\DEXTROSE MONOHYDRATE
     Indication: Vehicle solution use
     Dosage: 200 ML, 1X/DAY (4:1 250 ML AS REPORTED)
     Route: 041
     Dates: start: 20240730, end: 20240730
  3. SODIUM CHLORIDE [Suspect]
     Active Substance: SODIUM CHLORIDE
     Indication: Vehicle solution use
     Dosage: 50 ML, 1X/DAY (4:1 250 ML AS REPORTED)
     Route: 041
     Dates: start: 20240730, end: 20240730

REACTIONS (3)
  - Hepatic function abnormal [Recovering/Resolving]
  - Poor quality product administered [Unknown]
  - Product preparation error [Unknown]

NARRATIVE: CASE EVENT DATE: 20240730
